FAERS Safety Report 6212674-3 (Version None)
Quarter: 2009Q2

REPORT INFORMATION
  Report Type: 
  Country: None (occurrence: None)
  Receive Date: 20090603
  Receipt Date: 20090526
  Transmission Date: 20091009
  Serious: Yes (Other)
  Sender: FDA-Public Use
  Company Number: US-ROCHE-634922

PATIENT
  Age: 83 Year
  Sex: Female

DRUGS (6)
  1. BONIVA [Suspect]
     Indication: OSTEOPOROSIS
     Route: 048
  2. BONIVA [Suspect]
     Route: 048
     Dates: start: 20081201
  3. LYRICA [Concomitant]
     Indication: PAIN
  4. COUMADIN [Concomitant]
     Indication: ATRIAL FIBRILLATION
  5. XANAX [Concomitant]
     Indication: INSOMNIA
     Dosage: WHEN NEEDED
  6. COZAAR [Concomitant]
     Dosage: DRUG: COZAR

REACTIONS (2)
  - BLOOD DISORDER [None]
  - BREAST CANCER [None]
